FAERS Safety Report 9422999 (Version 4)
Quarter: 2014Q4

REPORT INFORMATION
  Report Type: Spontaneous
  Country: US (occurrence: US)
  Receive Date: 20130726
  Receipt Date: 20141114
  Transmission Date: 20150529
  Serious: Yes (Other)
  Sender: FDA-Public Use
  Company Number: US-GLAXOSMITHKLINE-A0857290A

PATIENT

DRUGS (5)
  1. LAMOTRIGINE. [Suspect]
     Active Substance: LAMOTRIGINE
     Indication: SEIZURE
     Dosage: 50 MG TWICE DAILY FOR TOTAL DOSE 100 MG
     Route: 048
     Dates: start: 201001, end: 201002
  2. MONOSODIUM GLUTAMATE [Suspect]
     Active Substance: MONOSODIUM GLUTAMATE
  3. ADDITIVES (UNSPECIFIED) [Suspect]
     Active Substance: UNSPECIFIED INGREDIENT
  4. NITRATES (UNSPECIFIED) [Suspect]
     Active Substance: UNSPECIFIED INGREDIENT
  5. LAMICTAL [Suspect]
     Active Substance: LAMOTRIGINE
     Indication: SEIZURE
     Dosage: 150MG TWICE DAILY FOR TOTAL DOSE 300 MG
     Route: 048
     Dates: start: 2000

REACTIONS (9)
  - Gastric disorder [Unknown]
  - Feeling abnormal [Unknown]
  - Insomnia [Recovered/Resolved]
  - Sleep disorder [Recovered/Resolved]
  - Amnesia [Unknown]
  - Flight of ideas [Unknown]
  - Poor quality sleep [Recovered/Resolved]
  - Concussion [Unknown]
  - Seizure [Unknown]

NARRATIVE: CASE EVENT DATE: 2000
